FAERS Safety Report 5619261-6 (Version None)
Quarter: 2008Q1

REPORT INFORMATION
  Report Type: 
  Country: None (occurrence: None)
  Receive Date: 20080205
  Receipt Date: 20080130
  Transmission Date: 20080703
  Serious: Yes (Death, Disabling)
  Sender: FDA-Public Use
  Company Number: 260-20785-07091331

PATIENT
  Age: 67 Year
  Sex: Female

DRUGS (10)
  1. THALIDOMIDE [Suspect]
     Indication: MULTIPLE MYELOMA
     Dosage: 100 MG, 2 IN 1 D, ORAL
     Route: 048
     Dates: start: 20070718, end: 20070101
  2. CONCOR (BISOPROLOL FUMARATE) [Concomitant]
  3. RAMIPRIL [Concomitant]
  4. VESSEL DUE (SULODEXIDE) [Concomitant]
  5. PREDUCTAL (TRIMETAZIDINE) [Concomitant]
  6. ZOMETA [Concomitant]
  7. EPREX [Concomitant]
  8. MORPHINE SULFATE [Concomitant]
  9. PALLADONE [Concomitant]
  10. FRAXIPARIN (HEPARIN-FRACTION, CALCIUM SALT) [Concomitant]

REACTIONS (10)
  - ANOREXIA [None]
  - ASTHENIA [None]
  - BACK PAIN [None]
  - HYPERCALCAEMIA [None]
  - INFLAMMATION [None]
  - MALIGNANT NEOPLASM PROGRESSION [None]
  - MONOPARESIS [None]
  - MULTIPLE MYELOMA [None]
  - SOMNOLENCE [None]
  - STUPOR [None]
